FAERS Safety Report 14690393 (Version 2)
Quarter: 2018Q2

REPORT INFORMATION
  Report Type: Spontaneous
  Country: MA (occurrence: MA)
  Receive Date: 20180328
  Receipt Date: 20180412
  Transmission Date: 20180711
  Serious: Yes (Hospitalization, Other)
  Sender: FDA-Public Use
  Company Number: MA-BAYER-2018-054218

PATIENT
  Age: 12 Year
  Sex: Male

DRUGS (3)
  1. CARBAMAZEPINE. [Suspect]
     Active Substance: CARBAMAZEPINE
  2. ACETYLSALICYLIC ACID({=100 MG) [Suspect]
     Active Substance: ASPIRIN
  3. AMOXICILLIN. [Interacting]
     Active Substance: AMOXICILLIN

REACTIONS (2)
  - Toxic epidermal necrolysis [None]
  - Potentiating drug interaction [None]
